FAERS Safety Report 15889129 (Version 3)
Quarter: 2019Q2

REPORT INFORMATION
  Report Type: Spontaneous
  Country: JP (occurrence: JP)
  Receive Date: 20190130
  Receipt Date: 20190619
  Transmission Date: 20190711
  Serious: Yes (Hospitalization)
  Sender: FDA-Public Use
  Company Number: PHJP2018JP013720

PATIENT
  Sex: Male

DRUGS (4)
  1. TASIGNA [Suspect]
     Active Substance: NILOTINIB
     Dosage: 400 MG, QD
     Route: 048
     Dates: start: 201905
  2. TASIGNA [Suspect]
     Active Substance: NILOTINIB
     Dosage: 200 MG, BID
     Route: 048
  3. TASIGNA [Suspect]
     Active Substance: NILOTINIB
     Indication: CHRONIC MYELOID LEUKAEMIA
     Dosage: 300 MG, UNK
     Route: 048
     Dates: start: 201806
  4. TASIGNA [Suspect]
     Active Substance: NILOTINIB
     Dosage: 200 MG, QD
     Route: 048
     Dates: start: 201906

REACTIONS (6)
  - Platelet count decreased [Unknown]
  - Incorrect dosage administered [Unknown]
  - Cardiac failure [Unknown]
  - Fall [Unknown]
  - Spinal fracture [Unknown]
  - Pleural effusion [Unknown]

NARRATIVE: CASE EVENT DATE: 201806
